FAERS Safety Report 5553335-3 (Version None)
Quarter: 2007Q4

REPORT INFORMATION
  Report Type: 
  Country: None (occurrence: None)
  Receive Date: 20071207
  Receipt Date: 20071207
  Transmission Date: 20080405
  Serious: Yes (Other)
  Sender: FDA-Public Use
  Company Number: None

PATIENT
  Age: 40 Year
  Sex: Female

DRUGS (1)
  1. ETHEZYME  PAPAIN 1.1X10 6 UNITS/UREA   ETHEX [Suspect]
     Dosage: EVERY 12 HOURS  TOP
     Route: 061
     Dates: start: 20071127, end: 20071127

REACTIONS (1)
  - DRUG INEFFECTIVE [None]
